FAERS Safety Report 14937779 (Version 1)
Quarter: 2018Q2

REPORT INFORMATION
  Report Type: Report from Study
  Country: CL (occurrence: CL)
  Receive Date: 20180525
  Receipt Date: 20180525
  Transmission Date: 20180711
  Serious: Yes (Hospitalization)
  Sender: FDA-Public Use
  Company Number: CL-ROCHE-2128844

PATIENT
  Age: 44 Year
  Sex: Female

DRUGS (1)
  1. ACTEMRA [Suspect]
     Active Substance: TOCILIZUMAB
     Indication: RHEUMATOID ARTHRITIS
     Route: 058
     Dates: start: 201410

REACTIONS (2)
  - Drug-induced liver injury [Recovering/Resolving]
  - Tuberculosis [Recovering/Resolving]

NARRATIVE: CASE EVENT DATE: 201802
